FAERS Safety Report 18873016 (Version 1)
Quarter: 2021Q1

REPORT INFORMATION
  Report Type: Spontaneous
  Country: BR (occurrence: BR)
  Receive Date: 20210210
  Receipt Date: 20210210
  Transmission Date: 20210420
  Serious: Yes (Other)
  Sender: FDA-Public Use
  Company Number: BR-PFIZER INC-2021111865

PATIENT
  Age: 40 Year
  Sex: Female

DRUGS (2)
  1. DEPO?PROVERA [Suspect]
     Active Substance: MEDROXYPROGESTERONE ACETATE
     Indication: EPILEPSY
  2. DEPO?PROVERA [Suspect]
     Active Substance: MEDROXYPROGESTERONE ACETATE
     Indication: THYROXINE DECREASED
     Dosage: 150 MG

REACTIONS (5)
  - Drug effective for unapproved indication [Unknown]
  - Epilepsy [Unknown]
  - Hypoglycaemia [Unknown]
  - Off label use [Unknown]
  - Cerebrovascular accident [Unknown]
